FAERS Safety Report 8257623-1 (Version None)
Quarter: 2012Q2

REPORT INFORMATION
  Report Type: 
  Country: None (occurrence: None)
  Receive Date: 20120403
  Receipt Date: 20120328
  Transmission Date: 20120825
  Serious: Yes (Other)
  Sender: FDA-Public Use
  Company Number: FR-B.I. PHARMACEUTICALS,INC./RIDGEFIELD-2012-FF-00379FF

PATIENT
  Sex: Male

DRUGS (2)
  1. PRAMIPEXOLE DIHYDROCHLORIDE [Suspect]
     Indication: PARKINSON'S DISEASE
     Dosage: 0.81 MG
     Route: 048
     Dates: start: 20090301, end: 20111101
  2. PRAMIPEXOLE DIHYDROCHLORIDE [Suspect]
     Dosage: 0.54 MG
     Route: 048
     Dates: start: 20111101

REACTIONS (2)
  - IMPULSE-CONTROL DISORDER [None]
  - HYPERSEXUALITY [None]
